FAERS Safety Report 4768224-1 (Version None)
Quarter: 2005Q3

REPORT INFORMATION
  Report Type: 
  Country: None (occurrence: None)
  Receive Date: 20050913
  Receipt Date: 20050830
  Transmission Date: 20060218
  Serious: Yes (Hospitalization, Other)
  Sender: FDA-Public Use
  Company Number: 2005-US-00013

PATIENT
  Age: 75 Year
  Sex: Male
  Weight: 90 kg

DRUGS (8)
  1. CITALOPRAM HBR TABLETS, 10MG, 20MG, 40MG, [Suspect]
     Dosage: 40 MG DAILY
  2. LEVOFLOXACIN [Suspect]
     Indication: URINARY TRACT INFECTION
     Dosage: 500 MG QD FOR 1 WEEK
  3. DONEPEZIL HCL [Suspect]
     Dosage: 10MG DAILY
  4. ASPIRIN [Suspect]
     Dosage: 81MG DAILY
  5. FLOATE SODIUM [Concomitant]
  6. GABAPENTIN [Concomitant]
  7. VALPROATE SODIUM [Concomitant]
  8. RANITIDINE [Concomitant]

REACTIONS (3)
  - BLOOD UREA INCREASED [None]
  - CONVULSION [None]
  - PLATELET COUNT DECREASED [None]
